FAERS Safety Report 9565823 (Version 1)
Quarter: 2013Q3

REPORT INFORMATION
  Report Type: Spontaneous
  Country: CA (occurrence: CA)
  Receive Date: 20130930
  Receipt Date: 20130930
  Transmission Date: 20140515
  Serious: Yes (Life-Threatening, Hospitalization, Other)
  Sender: FDA-Public Use
  Company Number: CA-ASTRAZENECA-2013SE72303

PATIENT
  Age: 83 Year
  Sex: Male
  Weight: 113.4 kg

DRUGS (2)
  1. ZOLADEX [Suspect]
     Route: 058
  2. LUPRON DEPOT [Suspect]
     Dosage: 30 MG, EVERY FOUR MONTHS
     Route: 065

REACTIONS (5)
  - Haemoglobin decreased [Unknown]
  - Metastases to bone [Unknown]
  - Pneumonia [Unknown]
  - Prostate cancer metastatic [Unknown]
  - Pulmonary oedema [Unknown]
